FAERS Safety Report 12253927 (Version 3)
Quarter: 2016Q2

REPORT INFORMATION
  Report Type: Spontaneous
  Country: US (occurrence: US)
  Receive Date: 20160411
  Receipt Date: 20160607
  Transmission Date: 20160815
  Serious: No
  Sender: FDA-Public Use
  Company Number: US-PFIZER INC-2016172712

PATIENT
  Age: 40 Year
  Sex: Male
  Weight: 119 kg

DRUGS (1)
  1. LIPITOR [Suspect]
     Active Substance: ATORVASTATIN CALCIUM
     Indication: BLOOD CHOLESTEROL INCREASED
     Dosage: 40 MG, HALF A TABLET, ONCE DAILY EVERY BEDTIME
     Route: 048

REACTIONS (4)
  - Gait disturbance [Unknown]
  - Fatigue [Not Recovered/Not Resolved]
  - Hypersomnia [Recovering/Resolving]
  - Fear of falling [Unknown]
